FAERS Safety Report 9413884 (Version 1)
Quarter: 2013Q3

REPORT INFORMATION
  Report Type: Spontaneous
  Country: CA (occurrence: CA)
  Receive Date: 20130723
  Receipt Date: 20130723
  Transmission Date: 20140515
  Serious: Yes (Death, Disabling, Other)
  Sender: FDA-Public Use
  Company Number: CA-ROCHE-1250073

PATIENT
  Age: 39 Year
  Sex: Female

DRUGS (6)
  1. MYCOPHENOLATE MOFETIL [Suspect]
     Indication: PRODUCT USED FOR UNKNOWN INDICATION
     Route: 065
  2. CYCLOSPORINE [Suspect]
     Indication: PRODUCT USED FOR UNKNOWN INDICATION
     Route: 065
  3. FLUDARABINE [Concomitant]
     Route: 065
  4. ANTITHYMOCYTE IMMUNOGLOBULIN [Concomitant]
     Route: 065
  5. BUSULFAN [Concomitant]
     Route: 065
  6. METHOTREXATE [Concomitant]
     Route: 065

REACTIONS (11)
  - Adenoviral hepatitis [Fatal]
  - Clonus [Fatal]
  - Demyelination [Fatal]
  - Diffuse axonal injury [Fatal]
  - Graft versus host disease [Fatal]
  - Hepatic necrosis [Fatal]
  - Inflammation [Fatal]
  - Multi-organ failure [Fatal]
  - Neuralgia [Fatal]
  - Paraesthesia [Fatal]
  - Relapsing-remitting multiple sclerosis [Fatal]
